FAERS Safety Report 9000354 (Version 1)
Quarter: 2013Q1

REPORT INFORMATION
  Report Type: Spontaneous
  Country: US (occurrence: None)
  Receive Date: 20130102
  Receipt Date: 20130102
  Transmission Date: 20140127
  Serious: Yes (Hospitalization)
  Sender: FDA-Public Use
  Company Number: None

PATIENT
  Age: 59 Year
  Sex: Male
  Weight: 130.2 kg

DRUGS (1)
  1. EXENATIDE [Suspect]
     Indication: DIABETES MELLITUS
     Route: 058
     Dates: start: 20081209, end: 20090909

REACTIONS (1)
  - Pancreatitis [None]
